FAERS Safety Report 14556520 (Version 1)
Quarter: 2018Q1

REPORT INFORMATION
  Report Type: Spontaneous
  Country: US (occurrence: US)
  Receive Date: 20180221
  Receipt Date: 20180221
  Transmission Date: 20180509
  Serious: Yes (Other)
  Sender: FDA-Public Use
  Company Number: US-ROCHE-2072878

PATIENT
  Sex: Female

DRUGS (27)
  1. TRASTUZUMAB EMTANSINE [Suspect]
     Active Substance: ADO-TRASTUZUMAB EMTANSINE
     Indication: PRODUCT USED FOR UNKNOWN INDICATION
     Route: 065
     Dates: start: 20130211
  2. FULVESTRANT. [Concomitant]
     Active Substance: FULVESTRANT
     Route: 065
     Dates: start: 200710
  3. HALDOL [Concomitant]
     Active Substance: HALOPERIDOL
     Route: 048
  4. LORAZEPAM. [Concomitant]
     Active Substance: LORAZEPAM
     Route: 048
  5. PANTOPRAZOLE SODIUM. [Concomitant]
     Active Substance: PANTOPRAZOLE SODIUM
     Dosage: 1 TABLET DAILY
     Route: 048
  6. ZYVOX [Concomitant]
     Active Substance: LINEZOLID
     Route: 042
  7. TRASTUZUMAB. [Suspect]
     Active Substance: TRASTUZUMAB
     Route: 065
     Dates: start: 20090410
  8. VINORELBINE [Concomitant]
     Active Substance: VINORELBINE\VINORELBINE TARTRATE
     Route: 065
     Dates: start: 200306
  9. ZOLEDRONATE [Concomitant]
     Active Substance: ZOLEDRONIC ACID
     Route: 065
     Dates: start: 201003
  10. GEMCITABINE [Concomitant]
     Active Substance: GEMCITABINE\GEMCITABINE HYDROCHLORIDE
     Route: 065
     Dates: start: 20120611
  11. PROMETHAZINE HCL [Concomitant]
     Active Substance: PROMETHAZINE HYDROCHLORIDE
     Dosage: 1 TABLET
     Route: 048
     Dates: start: 20091113
  12. CITALOPRAM [Concomitant]
     Active Substance: CITALOPRAM HYDROBROMIDE
     Route: 048
     Dates: start: 20141203
  13. MORPHINE IMMEDIATE RELEASE [Concomitant]
     Dosage: 2 TABLETS
     Route: 048
  14. PROMETHAZINE HCL [Concomitant]
     Active Substance: PROMETHAZINE HYDROCHLORIDE
     Dosage: 1 TABLET
     Route: 048
     Dates: start: 20120116
  15. LAPATINIB [Concomitant]
     Active Substance: LAPATINIB
     Route: 065
     Dates: start: 20100821
  16. EVEROLIMUS. [Concomitant]
     Active Substance: EVEROLIMUS
     Route: 065
     Dates: start: 20140614
  17. PACLITAXEL. [Concomitant]
     Active Substance: PACLITAXEL
     Route: 065
     Dates: start: 20160615
  18. AMBIEN [Concomitant]
     Active Substance: ZOLPIDEM TARTRATE
     Route: 048
  19. MAGNESIUM OXIDE. [Concomitant]
     Active Substance: MAGNESIUM OXIDE
     Dosage: 1 TABLET DAILY
     Route: 048
  20. METHADONE HCL [Concomitant]
     Active Substance: METHADONE HYDROCHLORIDE
     Dosage: 2 TABLETS DAILY
     Route: 048
  21. CAPECITABINE. [Suspect]
     Active Substance: CAPECITABINE
     Indication: PRODUCT USED FOR UNKNOWN INDICATION
     Route: 065
     Dates: start: 20100905
  22. VINORELBINE [Concomitant]
     Active Substance: VINORELBINE\VINORELBINE TARTRATE
     Route: 065
     Dates: start: 20090410
  23. CARBOPLATIN. [Concomitant]
     Active Substance: CARBOPLATIN
     Route: 065
     Dates: start: 20100716
  24. EXEMESTANE. [Concomitant]
     Active Substance: EXEMESTANE
     Route: 048
     Dates: start: 20140614
  25. TRASTUZUMAB. [Suspect]
     Active Substance: TRASTUZUMAB
     Indication: PRODUCT USED FOR UNKNOWN INDICATION
     Route: 065
     Dates: start: 200306
  26. PERTUZUMAB. [Suspect]
     Active Substance: PERTUZUMAB
     Indication: PRODUCT USED FOR UNKNOWN INDICATION
     Route: 065
     Dates: start: 20160615
  27. DOCETAXEL. [Concomitant]
     Active Substance: DOCETAXEL
     Route: 065
     Dates: start: 20091119

REACTIONS (1)
  - Breast cancer metastatic [Unknown]
